FAERS Safety Report 21654197 (Version 3)
Quarter: 2022Q4

REPORT INFORMATION
  Report Type: Report from Study
  Country: GR (occurrence: GR)
  Receive Date: 20221129
  Receipt Date: 20221203
  Transmission Date: 20230112
  Serious: Yes (Hospitalization, Other)
  Sender: FDA-Public Use
  Company Number: GR-ABBVIE-4215408

PATIENT
  Age: 72 Year
  Sex: Male
  Weight: 86 kg

DRUGS (5)
  1. CARBIDOPA\LEVODOPA [Suspect]
     Active Substance: CARBIDOPA\LEVODOPA
     Indication: Parkinson^s disease
     Dosage: MORNING DOSE: 9.8ML; CONTINUOUS RATE: 3.2ML/H; EXTRA DOSE: 1.0ML
     Route: 050
     Dates: start: 20200204
  2. CARBIDOPA\LEVODOPA [Suspect]
     Active Substance: CARBIDOPA\LEVODOPA
     Dosage: MORNING DOSE: 9.8 ML; CONTINUOUS RATE: 3.2 ML/H; EXTRA DOSE: 1 ML
     Route: 050
  3. CARBIDOPA\LEVODOPA [Suspect]
     Active Substance: CARBIDOPA\LEVODOPA
     Dosage: MORNING DOSE: 9.8 ML; CONTINUOUS RATE: 3.2 ML/H; EXTRA DOSE: 1 ML
     Route: 050
  4. PRAMIPEXOLE [Concomitant]
     Active Substance: PRAMIPEXOLE
     Indication: Product used for unknown indication
     Dosage: 0.52MG
     Route: 048
  5. SYMMETREL [Concomitant]
     Active Substance: AMANTADINE HYDROCHLORIDE
     Indication: Product used for unknown indication
     Route: 048

REACTIONS (4)
  - Loss of consciousness [Recovered/Resolved]
  - Haematochezia [Recovered/Resolved]
  - Hallucination [Recovered/Resolved]
  - Haematocrit abnormal [Recovering/Resolving]

NARRATIVE: CASE EVENT DATE: 20221125
